FAERS Safety Report 6317414-5 (Version None)
Quarter: 2009Q3

REPORT INFORMATION
  Report Type: 
  Country: None (occurrence: None)
  Receive Date: 20090820
  Receipt Date: 20090820
  Transmission Date: 20100115
  Serious: No
  Sender: FDA-Public Use
  Company Number: None

PATIENT
  Age: 65 Year
  Sex: Female
  Weight: 49.4421 kg

DRUGS (1)
  1. HELIDAC [Suspect]
     Indication: ULCER
     Dosage: 1 BLISTER PK. QID PO
     Route: 048
     Dates: start: 20090519, end: 20090522

REACTIONS (4)
  - DYSGEUSIA [None]
  - LIP DISCOLOURATION [None]
  - SKIN DISORDER [None]
  - TONGUE DISCOLOURATION [None]
